FAERS Safety Report 21921446 (Version 1)
Quarter: 2023Q1

REPORT INFORMATION
  Report Type: Spontaneous
  Country: US (occurrence: US)
  Receive Date: 20230127
  Receipt Date: 20230127
  Transmission Date: 20230417
  Serious: No
  Sender: FDA-Public Use
  Company Number: US-MYLANLABS-2023M1007897

PATIENT
  Sex: Male
  Weight: 94.8 kg

DRUGS (1)
  1. AMLODIPINE [Suspect]
     Active Substance: AMLODIPINE BESYLATE
     Indication: Hypertension
     Dosage: 10 MILLIGRAM (WHEN BLOOD PRESSURE IS HIGH, TAKEN THE PILL TWICE IN THE LAST 2 WEEKS.)
     Route: 065

REACTIONS (1)
  - Inappropriate schedule of product administration [Unknown]
